FAERS Safety Report 8558969-X (Version None)
Quarter: 2012Q3

REPORT INFORMATION
  Report Type: 
  Country: None (occurrence: None)
  Receive Date: 20120802
  Receipt Date: 20120720
  Transmission Date: 20120928
  Serious: Yes (Life-Threatening, Hospitalization, Other)
  Sender: FDA-Public Use
  Company Number: JP-AMGEN-JPNSP2012044171

PATIENT
  Age: 67 Year
  Sex: Female
  Weight: 44.7 kg

DRUGS (7)
  1. ONE-ALPHA [Concomitant]
     Indication: PROPHYLAXIS
     Dosage: 0.25 MG, 3X/DAY
     Route: 048
     Dates: start: 20110802, end: 20120610
  2. LANSOPRAZOLE [Concomitant]
     Indication: PROPHYLAXIS
     Dosage: 15 MG, 2X/DAY
     Route: 048
     Dates: start: 20090803, end: 20120610
  3. ENBREL [Suspect]
     Indication: RHEUMATOID ARTHRITIS
     Dosage: 25 MG, WEEKLY
     Route: 058
     Dates: start: 20110329, end: 20110329
  4. HANGE-SHASHIN-TO [Suspect]
     Indication: DYSPEPSIA
     Dosage: 2.5 G, 3X/DAY
     Route: 048
     Dates: start: 20120501, end: 20120609
  5. VOLTAREN [Concomitant]
     Indication: RHEUMATOID ARTHRITIS
     Dosage: 25 MG, 3X/DAY
     Route: 048
     Dates: start: 20080715, end: 20120610
  6. ENBREL [Suspect]
     Dosage: 50 MG, EVERY 2 WEEK
     Route: 058
     Dates: start: 20110405, end: 20120529
  7. PREDNISOLONE [Concomitant]
     Indication: RHEUMATOID ARTHRITIS
     Dosage: 5 MG, 1X/DAY
     Route: 048
     Dates: start: 20090803, end: 20120611

REACTIONS (4)
  - LUNG DISORDER [None]
  - HEART RATE INCREASED [None]
  - INTERSTITIAL LUNG DISEASE [None]
  - BLOOD PRESSURE INCREASED [None]
